FAERS Safety Report 17375404 (Version 1)
Quarter: 2020Q1

REPORT INFORMATION
  Report Type: Spontaneous
  Country: FR (occurrence: FR)
  Receive Date: 20200206
  Receipt Date: 20200206
  Transmission Date: 20200409
  Serious: Yes (Hospitalization)
  Sender: FDA-Public Use
  Company Number: FR-TEVA-2020-FR-1181508

PATIENT
  Age: 51 Year
  Sex: Male
  Weight: 67 kg

DRUGS (7)
  1. TAHOR [Concomitant]
     Active Substance: ATORVASTATIN CALCIUM
  2. ZEBINIX [Suspect]
     Active Substance: ESLICARBAZEPINE ACETATE
     Indication: EPILEPSY
     Dosage: 1200 MG
     Route: 048
     Dates: start: 20170606
  3. KARDEGIC [Concomitant]
     Active Substance: ASPIRIN DL-LYSINE
  4. URBANYL 5 MG, GELULE [Suspect]
     Active Substance: CLOBAZAM
     Indication: EPILEPSY
     Dosage: 5 - 5 - 10  (20 MG)
     Route: 048
     Dates: start: 2006
  5. TRAMADOL (CHLORHYDRATE DE) [Suspect]
     Active Substance: TRAMADOL HYDROCHLORIDE
     Indication: ANALGESIC THERAPY
     Dosage: 2 DOSAGE FORMS
     Route: 048
     Dates: start: 20181017, end: 20190204
  6. LAMICTAL [Suspect]
     Active Substance: LAMOTRIGINE
     Indication: EPILEPSY
     Dosage: 1 - 0 - 1  (200 MG)
     Route: 048
     Dates: start: 2006
  7. DEPAKINE [Suspect]
     Active Substance: VALPROATE SODIUM
     Indication: EPILEPSY
     Dosage: 2 - 0 - 2  (2000 MG)
     Route: 048
     Dates: start: 2006

REACTIONS (2)
  - Psychomotor skills impaired [Recovered/Resolved]
  - Gait disturbance [Recovered/Resolved]

NARRATIVE: CASE EVENT DATE: 201811
